FAERS Safety Report 7607999-0 (Version None)
Quarter: 2011Q3

REPORT INFORMATION
  Report Type: 
  Country: None (occurrence: None)
  Receive Date: 20110714
  Receipt Date: 20110711
  Transmission Date: 20111222
  Serious: No
  Sender: FDA-Public Use
  Company Number: US-PFIZER INC-2011156806

PATIENT
  Age: 76 Year
  Sex: Female

DRUGS (1)
  1. AMIODARONE HCL [Suspect]
     Dosage: UNK,
     Dates: start: 20110601

REACTIONS (3)
  - HYPERHIDROSIS [None]
  - DRUG INTOLERANCE [None]
  - NAUSEA [None]
